FAERS Safety Report 5040338-0 (Version None)
Quarter: 2006Q2

REPORT INFORMATION
  Report Type: 
  Country: None (occurrence: None)
  Receive Date: 20060630
  Receipt Date: 20060530
  Transmission Date: 20061013
  Serious: No
  Sender: FDA-Public Use
  Company Number: US-BRISTOL-MYERS SQUIBB COMPANY-13394291

PATIENT
  Age: 65 Year
  Sex: Male
  Weight: 84 kg

DRUGS (5)
  1. ORENCIA [Suspect]
     Indication: RHEUMATOID ARTHRITIS
     Route: 042
     Dates: start: 20060510
  2. METHOTREXATE [Suspect]
  3. PRAVACHOL [Concomitant]
     Dates: start: 20010101
  4. PREVACID [Concomitant]
     Dates: start: 19980101
  5. ASPIRIN [Concomitant]
     Dates: start: 20010101

REACTIONS (1)
  - DRUG INEFFECTIVE [None]
